FAERS Safety Report 17870705 (Version 1)
Quarter: 2020Q2

REPORT INFORMATION
  Report Type: Spontaneous
  Country: IT (occurrence: IT)
  Receive Date: 20200608
  Receipt Date: 20200608
  Transmission Date: 20200714
  Serious: Yes (Other)
  Sender: FDA-Public Use
  Company Number: NVSC2020IT121724

PATIENT
  Age: 30 Year
  Sex: Female

DRUGS (8)
  1. RISPERIDONE. [Suspect]
     Active Substance: RISPERIDONE
     Indication: NERVOUS SYSTEM DISORDER
     Dosage: UNK
     Route: 065
  2. RISPERIDONE. [Interacting]
     Active Substance: RISPERIDONE
     Indication: EPILEPSY
  3. VALPROATE [Interacting]
     Active Substance: VALPROIC ACID
     Indication: NERVOUS SYSTEM DISORDER
     Dosage: UNK
     Route: 065
  4. CLONAZEPAM. [Interacting]
     Active Substance: CLONAZEPAM
     Indication: NERVOUS SYSTEM DISORDER
     Dosage: UNK
     Route: 065
  5. PHENOBARBITAL. [Suspect]
     Active Substance: PHENOBARBITAL
     Indication: EPILEPSY
     Dosage: UNK
     Route: 065
  6. VALPROATE [Interacting]
     Active Substance: VALPROIC ACID
     Indication: EPILEPSY
  7. CLONAZEPAM. [Interacting]
     Active Substance: CLONAZEPAM
     Indication: EPILEPSY
  8. PROGESTERONE. [Interacting]
     Active Substance: PROGESTERONE
     Indication: PRODUCT USED FOR UNKNOWN INDICATION
     Dosage: UNK
     Route: 065

REACTIONS (2)
  - Drug interaction [Unknown]
  - Breast hyperplasia [Recovered/Resolved]
